FAERS Safety Report 25423162 (Version 1)
Quarter: 2025Q2

REPORT INFORMATION
  Report Type: Spontaneous
  Country: US (occurrence: US)
  Receive Date: 20250611
  Receipt Date: 20250611
  Transmission Date: 20250716
  Serious: No
  Sender: PIERRE FABRE MEDICAMENT
  Company Number: US-PFM-2024-06062

PATIENT
  Age: 0 Year
  Sex: Female
  Weight: 4.22 kg

DRUGS (2)
  1. HEMANGEOL [Suspect]
     Active Substance: PROPRANOLOL HYDROCHLORIDE
     Indication: Haemangioma
     Dosage: 1.2 ML, BID (2/DAY)
     Dates: start: 20241108
  2. D-Vi-Sol [Concomitant]
     Indication: Product used for unknown indication
     Route: 065

REACTIONS (1)
  - Infantile spitting up [Unknown]

NARRATIVE: CASE EVENT DATE: 20241108
